FAERS Safety Report 26039759 (Version 1)
Quarter: 2025Q4

REPORT INFORMATION
  Report Type: Spontaneous
  Country: US (occurrence: US)
  Receive Date: 20251113
  Receipt Date: 20251113
  Transmission Date: 20260117
  Serious: No
  Sender: CIPLA
  Company Number: US-CIPLA LTD.-2025US14462

PATIENT

DRUGS (2)
  1. ALBUTEROL\IPRATROPIUM [Suspect]
     Active Substance: ALBUTEROL\IPRATROPIUM
     Indication: Bronchiectasis
     Dosage: UNK, BID (30 VIALS PER CARTON/30 VIALS PER FOIL POUCH)
     Route: 065
  2. ALBUTEROL\IPRATROPIUM [Suspect]
     Active Substance: ALBUTEROL\IPRATROPIUM
     Indication: Pseudomonas infection
     Dosage: UNK, BID (30 VIALS PER CARTON/30 VIALS PER FOIL POUCH) (3 BOXES)
     Route: 065
     Dates: start: 2025

REACTIONS (3)
  - Off label use [Unknown]
  - Product quality issue [Unknown]
  - Product design issue [Unknown]

NARRATIVE: CASE EVENT DATE: 20250101
